FAERS Safety Report 13343106 (Version 1)
Quarter: 2017Q1

REPORT INFORMATION
  Report Type: Report from Study
  Country: CA (occurrence: CA)
  Receive Date: 20170316
  Receipt Date: 20170316
  Transmission Date: 20170428
  Serious: Yes (Other)
  Sender: FDA-Public Use
  Company Number: CA-JNJFOC-20170313440

PATIENT
  Age: 59 Year
  Sex: Female
  Weight: 82.5 kg

DRUGS (8)
  1. BUSCOPAN [Concomitant]
     Active Substance: BUTYLSCOPOLAMINE BROMIDE
     Route: 065
  2. ROCALTROL [Concomitant]
     Active Substance: CALCITRIOL
     Route: 065
  3. REMICADE [Suspect]
     Active Substance: INFLIXIMAB
     Indication: PSORIASIS
     Route: 042
     Dates: start: 200904
  4. ASACOL [Concomitant]
     Active Substance: MESALAMINE
     Route: 065
  5. AMITRIPTYLINE [Concomitant]
     Active Substance: AMITRIPTYLINE
     Route: 065
  6. REMICADE [Suspect]
     Active Substance: INFLIXIMAB
     Indication: ANKYLOSING SPONDYLITIS
     Route: 042
     Dates: start: 200904
  7. DICETEL [Concomitant]
     Active Substance: PINAVERIUM BROMIDE
     Route: 065
  8. VOLTAREN [Concomitant]
     Active Substance: DICLOFENAC SODIUM
     Route: 065

REACTIONS (5)
  - Vitreous detachment [Unknown]
  - Productive cough [Unknown]
  - Pyrexia [Unknown]
  - Pulmonary pain [Unknown]
  - Colitis ulcerative [Unknown]

NARRATIVE: CASE EVENT DATE: 20170210
